FAERS Safety Report 9285262 (Version 1)
Quarter: 2013Q2

REPORT INFORMATION
  Report Type: Spontaneous
  Country: US (occurrence: US)
  Receive Date: 20130513
  Receipt Date: 20130513
  Transmission Date: 20140414
  Serious: No
  Sender: FDA-Public Use
  Company Number: US-ASTRAZENECA-2013SE24465

PATIENT
  Age: 76 Year
  Sex: Female
  Weight: 59 kg

DRUGS (3)
  1. PULMICORT FLEXHALER [Suspect]
     Indication: BRONCHITIS
     Dosage: 10 DOSES 1 PUFF TWO TIMES A DAY
     Route: 055
     Dates: start: 20130115
  2. NEURONTIN [Concomitant]
     Indication: NEURALGIA
  3. BACLOFEN [Concomitant]
     Indication: NEURALGIA

REACTIONS (2)
  - Bronchitis [Unknown]
  - Intentional drug misuse [Unknown]
